FAERS Safety Report 5590715-4 (Version None)
Quarter: 2008Q1

REPORT INFORMATION
  Report Type: 
  Country: None (occurrence: None)
  Receive Date: 20080114
  Receipt Date: 20080102
  Transmission Date: 20080703
  Serious: Yes (Other)
  Sender: FDA-Public Use
  Company Number: PT-PFIZER INC-2007097332

PATIENT
  Sex: Female
  Weight: 54 kg

DRUGS (2)
  1. CHANTIX [Suspect]
     Indication: SMOKING CESSATION THERAPY
     Route: 048
  2. BELARA [Concomitant]
     Route: 048

REACTIONS (3)
  - APHTHOUS STOMATITIS [None]
  - LIP OEDEMA [None]
  - VIRAL INFECTION [None]
